FAERS Safety Report 7750884-4 (Version None)
Quarter: 2011Q3

REPORT INFORMATION
  Report Type: 
  Country: None (occurrence: None)
  Receive Date: 20110914
  Receipt Date: 20110906
  Transmission Date: 20111222
  Serious: Yes (Other)
  Sender: FDA-Public Use
  Company Number: US-ASTRAZENECA-2011SE53598

PATIENT
  Age: 44 Year
  Sex: Female
  Weight: 77.1 kg

DRUGS (4)
  1. SEROQUEL XR [Suspect]
     Indication: DEPRESSION
     Route: 048
  2. PAXIL [Concomitant]
     Indication: DEPRESSION
  3. TRAVAVONE [Concomitant]
     Indication: DEPRESSION
  4. LITHIUM [Concomitant]
     Indication: DEPRESSION

REACTIONS (1)
  - BREAST CANCER [None]
